FAERS Safety Report 15056428 (Version 1)
Quarter: 2018Q2

REPORT INFORMATION
  Report Type: Report from Study
  Country: None (occurrence: RO)
  Receive Date: 20180622
  Receipt Date: 20180622
  Transmission Date: 20180711
  Serious: Yes (Death, Hospitalization)
  Sender: FDA-Public Use
  Company Number: RO-ABBVIE-18P-135-2385492-00

PATIENT
  Age: 67 Year
  Sex: Female

DRUGS (4)
  1. EXVIERA [Suspect]
     Active Substance: DASABUVIR
     Indication: HEPATITIS C
     Route: 048
     Dates: start: 20180522, end: 20180608
  2. EXVIERA [Suspect]
     Active Substance: DASABUVIR
     Indication: HEPATIC CIRRHOSIS
  3. VIEKIRAX [Suspect]
     Active Substance: OMBITASVIR\PARITAPREVIR\RITONAVIR
     Indication: HEPATITIS C
     Route: 048
     Dates: start: 20180522, end: 20180608
  4. VIEKIRAX [Suspect]
     Active Substance: OMBITASVIR\PARITAPREVIR\RITONAVIR
     Indication: HEPATIC CIRRHOSIS

REACTIONS (23)
  - Cerebral calcification [Fatal]
  - Varices oesophageal [Fatal]
  - Peritoneal disorder [Fatal]
  - Lymphadenopathy [Fatal]
  - Neurological examination abnormal [Fatal]
  - Hypoalbuminaemia [Fatal]
  - Encephalopathy [Fatal]
  - Platelet count abnormal [Fatal]
  - General physical health deterioration [Fatal]
  - Coma hepatic [Fatal]
  - Duodenitis [Fatal]
  - Portal hypertension [Fatal]
  - Peritonitis bacterial [Fatal]
  - Gastrointestinal wall thickening [Fatal]
  - Pancreatic enzymes increased [Fatal]
  - Jaundice cholestatic [Fatal]
  - Hepatic failure [Unknown]
  - Coagulation test abnormal [Fatal]
  - Meningioma [Fatal]
  - Asthenia [Fatal]
  - Fibrin D dimer increased [Fatal]
  - Fatigue [Fatal]
  - Gastrointestinal infection [Recovered/Resolved]

NARRATIVE: CASE EVENT DATE: 2018
